FAERS Safety Report 4860804-8 (Version None)
Quarter: 2005Q4

REPORT INFORMATION
  Report Type: 
  Country: None (occurrence: None)
  Receive Date: 20051216
  Receipt Date: 20051216
  Transmission Date: 20060501
  Serious: Yes (Hospitalization)
  Sender: FDA-Public Use
  Company Number: None

PATIENT
  Age: 64 Year
  Sex: Female
  Weight: 46.7205 kg

DRUGS (1)
  1. OXALIPLATIN-   FOLFOX6 [Suspect]
     Indication: COLON CANCER
     Dosage: 100 MG/M2  Q 2 WKS X 12
     Dates: start: 20050503, end: 20051018

REACTIONS (3)
  - BRONCHITIS [None]
  - PULMONARY FIBROSIS [None]
  - THERAPY NON-RESPONDER [None]
